FAERS Safety Report 17398292 (Version 1)
Quarter: 2020Q1

REPORT INFORMATION
  Report Type: Spontaneous
  Country: JP (occurrence: JP)
  Receive Date: 20200210
  Receipt Date: 20200210
  Transmission Date: 20200409
  Serious: Yes (Hospitalization, Other)
  Sender: FDA-Public Use
  Company Number: JP-NOVOPROD-703597

PATIENT
  Age: 50 Year
  Sex: Male

DRUGS (7)
  1. TRESIBA [Suspect]
     Active Substance: INSULIN DEGLUDEC
     Indication: TYPE 2 DIABETES MELLITUS
     Dosage: 4 IU, QD (4-0-0-0)
     Route: 058
     Dates: start: 201408
  2. HUMALOG [Suspect]
     Active Substance: INSULIN LISPRO
     Dosage: 24 IU, QD (8-8-8-0) ON THE DAY OF NO DIALYSIS
     Route: 058
     Dates: start: 201911
  3. TRESIBA [Suspect]
     Active Substance: INSULIN DEGLUDEC
     Dosage: 6 TO 7 UNITS DEPENDING ON BLOOD GLUCOSE AND PHYSICAL CONDITION) ON THE DAY OF DIALYSIS
     Route: 058
     Dates: start: 201911
  4. HUMALOG [Suspect]
     Active Substance: INSULIN LISPRO
     Indication: TYPE 2 DIABETES MELLITUS
     Dosage: 12 IU, QD (4-4-4-0)
     Route: 058
     Dates: start: 201909
  5. HUMALOG [Suspect]
     Active Substance: INSULIN LISPRO
     Dosage: 9 IU, QD (3-3-3-0) ON THE DAY OF DIALYSIS
     Route: 058
     Dates: start: 201909
  6. TRESIBA [Suspect]
     Active Substance: INSULIN DEGLUDEC
     Dosage: 8 IU, QD (8-0-0-0) ON THE DAY OF NO DIALYSIS
     Route: 058
     Dates: start: 201911
  7. HUMALOG [Suspect]
     Active Substance: INSULIN LISPRO
     Dosage: 15 IU, QD (5-5-5-0) ON THE DAY OF DIALYSIS
     Route: 058
     Dates: start: 201911

REACTIONS (2)
  - Cardiac failure congestive [Recovered/Resolved]
  - Hypoglycaemic unconsciousness [Recovered/Resolved]

NARRATIVE: CASE EVENT DATE: 201907
